FAERS Safety Report 8008838-9 (Version None)
Quarter: 2011Q4

REPORT INFORMATION
  Report Type: 
  Country: None (occurrence: None)
  Receive Date: 20111221
  Receipt Date: 20111215
  Transmission Date: 20120403
  Serious: Yes (Other)
  Sender: FDA-Public Use
  Company Number: AUR-APU-2011-05489

PATIENT
  Sex: Male

DRUGS (1)
  1. LOSARTAN POTASSIUM [Suspect]
     Indication: HYPERTENSION
     Dosage: 1 DOSAGE FORMS (1 DOSAGE FORMS,1 IN 24 HR),ORAL
     Route: 048
     Dates: end: 20111009

REACTIONS (4)
  - HEART RATE DECREASED [None]
  - BLOOD PRESSURE INCREASED [None]
  - EPISTAXIS [None]
  - WRONG DRUG ADMINISTERED [None]
